FAERS Safety Report 8208191-1 (Version None)
Quarter: 2012Q1

REPORT INFORMATION
  Report Type: 
  Country: None (occurrence: None)
  Receive Date: 20120314
  Receipt Date: 20120308
  Transmission Date: 20120608
  Serious: Yes (Other)
  Sender: FDA-Public Use
  Company Number: PHEH2012US005331

PATIENT
  Sex: Male

DRUGS (2)
  1. TEKTURNA [Suspect]
  2. DIOVAN [Suspect]

REACTIONS (4)
  - DIABETES MELLITUS [None]
  - SPEECH DISORDER [None]
  - THROAT CANCER [None]
  - EMPHYSEMA [None]
